FAERS Safety Report 10913945 (Version 1)
Quarter: 2015Q1

REPORT INFORMATION
  Report Type: Spontaneous
  Country: FR (occurrence: None)
  Receive Date: 20150310
  Receipt Date: 20150310
  Transmission Date: 20150721
  Serious: Yes (Other)
  Sender: FDA-Public Use
  Company Number: FR-20150066

PATIENT
  Age: 18 Year
  Sex: Male

DRUGS (1)
  1. DOTAREM [Suspect]
     Active Substance: GADOTERATE MEGLUMINE
     Indication: IMAGING PROCEDURE
     Dates: start: 20150223, end: 20150223

REACTIONS (4)
  - Pruritus [None]
  - Papule [None]
  - Vomiting [None]
  - Generalised erythema [None]

NARRATIVE: CASE EVENT DATE: 20150223
